FAERS Safety Report 9339295 (Version 1)
Quarter: 2013Q2

REPORT INFORMATION
  Report Type: Spontaneous
  Country: DE (occurrence: DE)
  Receive Date: 20130610
  Receipt Date: 20130610
  Transmission Date: 20140414
  Serious: Yes (Hospitalization)
  Sender: FDA-Public Use
  Company Number: PHHY2013DE058013

PATIENT
  Age: 52 Year
  Sex: Female

DRUGS (7)
  1. LEPONEX [Suspect]
     Indication: SCHIZOPHRENIA, PARANOID TYPE
     Dosage: 250 MG, DAILY
     Route: 048
     Dates: end: 20130519
  2. LEPONEX [Suspect]
     Dosage: 50 MG, DAILY
     Route: 048
  3. LEPONEX [Suspect]
     Dosage: 250 MG, DAILY
     Route: 048
  4. CIATYL [Concomitant]
     Dosage: 2 MG, 1 DF TID
  5. CHLORPROTHIXENE [Concomitant]
     Dosage: 30 MG, UNK
  6. ALPRAZOLAM [Concomitant]
     Dosage: 0.25MG MORNING/0.5MG EVENING
  7. VALPROIC ACID [Concomitant]
     Dosage: 600 MG, TWO TIMES A DAY

REACTIONS (1)
  - Chronic obstructive pulmonary disease [Recovered/Resolved]
